FAERS Safety Report 21990319 (Version 1)
Quarter: 2023Q1

REPORT INFORMATION
  Report Type: Spontaneous
  Country: US (occurrence: None)
  Receive Date: 20230213
  Receipt Date: 20230213
  Transmission Date: 20230417
  Serious: No
  Sender: FDA-Public Use
  Company Number: None

PATIENT
  Sex: Female

DRUGS (13)
  1. AMBRISENTAN [Suspect]
     Active Substance: AMBRISENTAN
     Indication: Pulmonary arterial hypertension
     Dosage: FREQUENCY : DAILY;?
     Route: 048
  2. CILOSTAZOL [Concomitant]
     Active Substance: CILOSTAZOL
  3. PREDNISONE [Concomitant]
     Active Substance: PREDNISONE
  4. COLCRYS [Concomitant]
     Active Substance: COLCHICINE
  5. ADEMPAS [Concomitant]
     Active Substance: RIOCIGUAT
  6. LEVOCETIRIZINE DIHYDROCHL [Concomitant]
  7. FUROSEMIDE [Concomitant]
     Active Substance: FUROSEMIDE
  8. LETAIRIS [Concomitant]
     Active Substance: AMBRISENTAN
  9. LOVASTATIN [Concomitant]
     Active Substance: LOVASTATIN
  10. VALSARTAN/HYDROCHLOROTHIA [Concomitant]
  11. LEVOTHYROXINE SODIUM [Concomitant]
     Active Substance: LEVOTHYROXINE SODIUM
  12. ASPIRIN [Concomitant]
     Active Substance: ASPIRIN
  13. LINZESS [Concomitant]
     Active Substance: LINACLOTIDE

REACTIONS (2)
  - Drug effect less than expected [None]
  - Joint swelling [None]
